FAERS Safety Report 6294328-0 (Version None)
Quarter: 2009Q3

REPORT INFORMATION
  Report Type: 
  Country: None (occurrence: None)
  Receive Date: 20090803
  Receipt Date: 20090720
  Transmission Date: 20100115
  Serious: Yes (Hospitalization)
  Sender: FDA-Public Use
  Company Number: FR-PFIZER INC-2009231876

PATIENT
  Age: 66 Year

DRUGS (8)
  1. SOLU-MEDROL [Suspect]
     Indication: DECREASED APPETITE
     Dosage: 1 DF, 1X/DAY
     Route: 042
     Dates: start: 20090413, end: 20090512
  2. HYDROXYZINE HCL [Suspect]
     Indication: INSOMNIA
     Dosage: 1 DF, 1X/DAY
     Route: 042
     Dates: start: 20090413, end: 20090512
  3. SCOPODERM [Suspect]
     Dosage: UNK
     Route: 003
     Dates: start: 20090306, end: 20090512
  4. ACTISKENAN [Suspect]
     Dosage: 10 MG, 1X/DAY
     Route: 048
     Dates: start: 20090217, end: 20090512
  5. NEXIUM [Suspect]
     Indication: OESOPHAGITIS
     Dosage: 40 MG, 1X/DAY
     Route: 042
     Dates: start: 20090413, end: 20090420
  6. DEROXAT [Suspect]
     Indication: DEPRESSION
     Dosage: UNK
     Route: 048
     Dates: start: 20090412, end: 20090512
  7. DURAGESIC-100 [Suspect]
     Dosage: 1 DF, 1X/DAY
     Route: 062
     Dates: start: 20090414, end: 20090512
  8. THERAPEUTIC RADIOPHARMACEUTICALS [Concomitant]
     Indication: NEOPLASM

REACTIONS (1)
  - THROMBOCYTOPENIA [None]
